FAERS Safety Report 4766938-0 (Version None)
Quarter: 2005Q3

REPORT INFORMATION
  Report Type: 
  Country: None (occurrence: None)
  Receive Date: 20050913
  Receipt Date: 20050907
  Transmission Date: 20060218
  Serious: Yes (Hospitalization)
  Sender: FDA-Public Use
  Company Number: JP-BOEHRINGER INGELHEIM PHARMACEUTICALS, INC.-2005-BP-15757NB

PATIENT
  Age: 74 Year
  Sex: Male

DRUGS (9)
  1. SPIRIVA [Suspect]
     Indication: DYSPNOEA
     Route: 048
     Dates: start: 20050622
  2. SOLANAX [Concomitant]
     Route: 048
  3. MEVALOTIN [Concomitant]
     Route: 048
  4. NU-LOTAN [Concomitant]
     Route: 048
  5. DIGOXIN [Concomitant]
     Route: 048
  6. CIBENOL [Concomitant]
     Route: 048
  7. RHYTHMY [Concomitant]
     Route: 048
  8. DEPAS [Concomitant]
     Route: 048
  9. FLOMOX [Concomitant]
     Route: 048

REACTIONS (1)
  - RESPIRATORY FAILURE [None]
